FAERS Safety Report 11431029 (Version 2)
Quarter: 2018Q3

REPORT INFORMATION
  Report Type: Spontaneous
  Country: US (occurrence: US)
  Receive Date: 20150828
  Receipt Date: 20180817
  Transmission Date: 20181010
  Serious: Yes (Hospitalization)
  Sender: FDA-Public Use
  Company Number: US-PFIZER INC-2003021907

PATIENT
  Age: 37 Year
  Sex: Female

DRUGS (1)
  1. VIBRAMYCIN [Suspect]
     Active Substance: DOXYCYCLINE
     Indication: ROCKY MOUNTAIN SPOTTED FEVER
     Dosage: 100 MG, 2X/DAY
     Route: 048

REACTIONS (4)
  - Weight decreased [Unknown]
  - Tachyphylaxis [Unknown]
  - Cholestasis [Not Recovered/Not Resolved]
  - Biliary tract disorder [Not Recovered/Not Resolved]
